FAERS Safety Report 9604452 (Version 1)
Quarter: 2013Q4

REPORT INFORMATION
  Report Type: Spontaneous
  Country: US (occurrence: US)
  Receive Date: 20131008
  Receipt Date: 20131008
  Transmission Date: 20140711
  Serious: No
  Sender: FDA-Public Use
  Company Number: US-009507513-1310USA002018

PATIENT
  Age: 62 Year
  Sex: Male

DRUGS (3)
  1. PEGINTRON [Suspect]
     Indication: HEPATITIS C
     Dosage: 1 INJECTION WEEKLY, (REDIPEN) (150/0.5)
     Dates: end: 2011
  2. PEGINTRON [Suspect]
     Dosage: 1 INJECTION, QW (REDIPEN) (150/0.5)
     Dates: start: 201301
  3. THERAPY UNSPECIFIED [Suspect]
     Dosage: UNK
     Dates: end: 2011

REACTIONS (3)
  - No therapeutic response [Unknown]
  - Drug dose omission [Unknown]
  - Incorrect product storage [Unknown]
